FAERS Safety Report 4850580-7 (Version None)
Quarter: 2005Q4

REPORT INFORMATION
  Report Type: 
  Country: None (occurrence: None)
  Receive Date: 20051212
  Receipt Date: 20051205
  Transmission Date: 20060501
  Serious: Yes (Death, Hospitalization)
  Sender: FDA-Public Use
  Company Number: CZ-JNJFOC-20050503971

PATIENT
  Sex: Female

DRUGS (11)
  1. INFLIXIMAB [Suspect]
     Route: 042
  2. INFLIXIMAB [Suspect]
     Route: 042
  3. INFLIXIMAB [Suspect]
     Route: 042
  4. INFLIXIMAB [Suspect]
     Route: 042
  5. METHOTREXATE [Concomitant]
     Indication: RHEUMATOID ARTHRITIS
     Route: 048
  6. PREDNISON [Concomitant]
     Indication: RHEUMATOID ARTHRITIS
     Route: 048
  7. NSAIDS [Concomitant]
  8. CELEBREX [Concomitant]
     Route: 048
  9. HELICID [Concomitant]
     Route: 048
  10. RANIL [Concomitant]
     Route: 048
  11. ACIDUM FOLICUM [Concomitant]
     Route: 048

REACTIONS (1)
  - TUBERCULOSIS [None]
